FAERS Safety Report 8482792 (Version 6)
Quarter: 2019Q2

REPORT INFORMATION
  Report Type: Spontaneous
  Country: US (occurrence: US)
  Receive Date: 20120329
  Receipt Date: 20190605
  Transmission Date: 20190711
  Serious: Yes (Death, Hospitalization, Disabling, Other)
  Sender: FDA-Public Use
  Company Number: US-009507513-1203USA03320

PATIENT
  Sex: Female
  Weight: 72.56 kg

DRUGS (4)
  1. DELACOR [Concomitant]
     Indication: HYPERTENSION
     Dosage: UNK
  2. FOSAMAX [Suspect]
     Active Substance: ALENDRONATE SODIUM
     Indication: OSTEOPOROSIS
     Dosage: 10 MG, QD
     Route: 048
     Dates: start: 1996
  3. LOPRESSOR [Concomitant]
     Active Substance: METOPROLOL TARTRATE
     Indication: HYPERTENSION
     Dosage: UNK
  4. FOSAMAX [Suspect]
     Active Substance: ALENDRONATE SODIUM
     Dosage: UNK, QW
     Route: 048

REACTIONS (50)
  - Ankle fracture [Unknown]
  - Fall [Unknown]
  - Impaired healing [Unknown]
  - Thyroid cyst [Unknown]
  - Monoclonal gammopathy [Unknown]
  - Abdominal pain lower [Unknown]
  - Adverse event [Unknown]
  - Type V hyperlipidaemia [Unknown]
  - Hiatus hernia [Unknown]
  - Low turnover osteopathy [Unknown]
  - Hypothyroidism [Unknown]
  - Aortic arteriosclerosis [Unknown]
  - Dyspnoea exertional [Unknown]
  - Asthenia [Unknown]
  - Back pain [Unknown]
  - Blood potassium decreased [Unknown]
  - Dehydration [Unknown]
  - Impaired fasting glucose [Unknown]
  - Arthritis [Unknown]
  - Gastrooesophageal reflux disease [Unknown]
  - Constipation [Unknown]
  - Diarrhoea [Unknown]
  - Pulmonary fibrosis [Fatal]
  - Osteoporosis [Unknown]
  - Chronic kidney disease [Unknown]
  - Diverticulum intestinal [Unknown]
  - Fall [Unknown]
  - Seborrhoeic keratosis [Unknown]
  - Hyperparathyroidism [Unknown]
  - Bowen^s disease [Unknown]
  - Autoimmune disorder [Unknown]
  - Femur fracture [Unknown]
  - Stress fracture [Unknown]
  - Anxiety [Not Recovered/Not Resolved]
  - Vitamin D deficiency [Unknown]
  - Renal cyst [Unknown]
  - Atelectasis [Unknown]
  - Intervertebral disc degeneration [Unknown]
  - Connective tissue disorder [Unknown]
  - Drug ineffective [Unknown]
  - Pelvic fracture [Unknown]
  - Neuropathy peripheral [Unknown]
  - Femur fracture [Unknown]
  - Haematocrit decreased [Recovering/Resolving]
  - Hypotension [Unknown]
  - Intramedullary rod insertion [Unknown]
  - Cataract [Unknown]
  - Haemoglobin decreased [Recovering/Resolving]
  - Coronary artery disease [Unknown]
  - Palpitations [Unknown]

NARRATIVE: CASE EVENT DATE: 1999
